FAERS Safety Report 8287894-7 (Version None)
Quarter: 2012Q2

REPORT INFORMATION
  Report Type: 
  Country: None (occurrence: None)
  Receive Date: 20120416
  Receipt Date: 20120405
  Transmission Date: 20120825
  Serious: Yes (Hospitalization)
  Sender: FDA-Public Use
  Company Number: FR-ASTRAZENECA-2012SE22735

PATIENT
  Age: 659 Month
  Sex: Female

DRUGS (7)
  1. LITHIUM CARBONATE [Concomitant]
     Dates: start: 20050101
  2. ANAFRANIL [Concomitant]
     Dates: start: 20090101
  3. LEVOTHYROXINE SODIUM [Concomitant]
     Indication: HYPOTHYROIDISM
     Dates: start: 20090101
  4. PARKINANE LP [Concomitant]
  5. QUETIAPINE FUMARATE [Suspect]
     Indication: BIPOLAR DISORDER
     Route: 048
     Dates: start: 20120201, end: 20120315
  6. XANAX [Concomitant]
     Dosage: 0.5 MG, HALF TABLET IN THE MORNING, TABLET AT MIIDAY AND IN THE EVENING
     Dates: start: 20090101
  7. ZOLPIDEM TARTRATE [Concomitant]
     Dates: start: 20050101

REACTIONS (3)
  - GENERALISED ERYTHEMA [None]
  - DERMATITIS PSORIASIFORM [None]
  - SKIN EXFOLIATION [None]
